FAERS Safety Report 10291332 (Version 6)
Quarter: 2016Q4

REPORT INFORMATION
  Report Type: Report from Study
  Country: US (occurrence: US)
  Receive Date: 20140710
  Receipt Date: 20161115
  Transmission Date: 20170206
  Serious: Yes (Other)
  Sender: FDA-Public Use
  Company Number: US-SA-2013SA122915

PATIENT
  Age: 65 Year
  Sex: Female

DRUGS (3)
  1. AUBAGIO [Suspect]
     Active Substance: TERIFLUNOMIDE
     Indication: MULTIPLE SCLEROSIS
     Route: 048
     Dates: start: 20130826, end: 20140706
  2. AUBAGIO [Suspect]
     Active Substance: TERIFLUNOMIDE
     Indication: MULTIPLE SCLEROSIS
     Route: 048
     Dates: start: 20140707, end: 20140901
  3. TECFIDERA [Concomitant]
     Active Substance: DIMETHYL FUMARATE
     Dates: start: 2013, end: 2014

REACTIONS (13)
  - Pain in extremity [Unknown]
  - Abdominal pain upper [Unknown]
  - Diarrhoea [Unknown]
  - Thrombosis [Unknown]
  - Fatigue [Not Recovered/Not Resolved]
  - Abdominal discomfort [Unknown]
  - Nausea [Unknown]
  - Blood pressure increased [Not Recovered/Not Resolved]
  - Intervertebral disc protrusion [Unknown]
  - Muscular weakness [Unknown]
  - Nerve compression [Unknown]
  - Hypoaesthesia [Unknown]
  - Vomiting [Unknown]

NARRATIVE: CASE EVENT DATE: 201311
